FAERS Safety Report 9056223 (Version 1)
Quarter: 2013Q1

REPORT INFORMATION
  Report Type: Report from Study
  Country: CA (occurrence: CA)
  Receive Date: 20130205
  Receipt Date: 20130205
  Transmission Date: 20140127
  Serious: Yes (Other)
  Sender: FDA-Public Use
  Company Number: CA-JNJFOC-20130103314

PATIENT
  Age: 38 None
  Sex: Male
  Weight: 69 kg

DRUGS (9)
  1. REMICADE [Suspect]
     Indication: CROHN^S DISEASE
     Dosage: RE-DOSE, FIRST INFUSION, REINDUCTION
     Route: 042
     Dates: start: 20130104
  2. REMICADE [Suspect]
     Indication: CROHN^S DISEASE
     Dosage: FIRST TIME - REINDUCTION DOSE
     Route: 042
  3. REMICADE [Suspect]
     Indication: CROHN^S DISEASE
     Dosage: INFUSION 2, REINDUCTION DOSE
     Route: 042
     Dates: start: 20120816
  4. REMICADE [Suspect]
     Indication: CROHN^S DISEASE
     Route: 042
     Dates: start: 20130123, end: 20130123
  5. IMURAN [Concomitant]
     Route: 065
  6. CIPRO [Concomitant]
     Route: 065
  7. FLAGYL [Concomitant]
     Route: 065
  8. BENADRYL [Concomitant]
     Indication: PREMEDICATION
     Route: 048
     Dates: start: 20120816
  9. TYLENOL [Concomitant]
     Indication: PREMEDICATION
     Route: 048
     Dates: start: 20120816

REACTIONS (6)
  - Dysphonia [Recovered/Resolved]
  - Infusion related reaction [Recovered/Resolved]
  - Erythema [Unknown]
  - Cough [Recovered/Resolved]
  - Pruritus [Recovered/Resolved]
  - Hot flush [Recovered/Resolved]
